APPROVED DRUG PRODUCT: SOOLANTRA
Active Ingredient: IVERMECTIN
Strength: 1%
Dosage Form/Route: CREAM;TOPICAL
Application: N206255 | Product #001 | TE Code: AB
Applicant: GALDERMA LABORATORIES LP
Approved: Dec 19, 2014 | RLD: Yes | RS: Yes | Type: RX

PATENTS:
Patent 9233118 | Expires: Mar 13, 2034
Patent 9089587 | Expires: Mar 13, 2034
Patent 9233117 | Expires: Mar 13, 2034
Patent 9782425 | Expires: Mar 13, 2034
Patent 10206939 | Expires: Mar 13, 2034